FAERS Safety Report 14999997 (Version 1)
Quarter: 2018Q2

REPORT INFORMATION
  Report Type: Spontaneous
  Country: FR (occurrence: FR)
  Receive Date: 20180612
  Receipt Date: 20180612
  Transmission Date: 20180711
  Serious: Yes (Other)
  Sender: FDA-Public Use
  Company Number: FR-TEVA-2018-FR-904475

PATIENT
  Age: 65 Year
  Sex: Male
  Weight: 75 kg

DRUGS (9)
  1. MIDAZOLAM [Suspect]
     Active Substance: MIDAZOLAM HYDROCHLORIDE
     Indication: SEDATION
     Route: 042
     Dates: start: 20180321, end: 20180403
  2. AMIKACINE MYLAN [Suspect]
     Active Substance: AMIKACIN
     Indication: SEPTIC SHOCK
     Route: 065
     Dates: end: 20180402
  3. FENTANYL MYLAN [Suspect]
     Active Substance: FENTANYL
     Indication: PAIN
     Route: 042
     Dates: start: 20180401, end: 20180403
  4. NEFOPAM MYLAN [Suspect]
     Active Substance: NEFOPAM
     Indication: PAIN
     Route: 042
     Dates: start: 20180326
  5. CEFTAZIDIME PANPHARMA [Suspect]
     Active Substance: CEFTAZIDIME
     Indication: SEPTIC SHOCK
     Route: 042
     Dates: start: 20180401, end: 20180403
  6. OMEPRAZOLE MYLAN 40 MG, POUDRE POUR SOLUTION POUR PERFUSION [Suspect]
     Active Substance: OMEPRAZOLE
     Indication: PRODUCT USED FOR UNKNOWN INDICATION
     Route: 042
     Dates: start: 20180319
  7. TRAMADOL. [Suspect]
     Active Substance: TRAMADOL
     Indication: PAIN
     Route: 065
     Dates: start: 20180325
  8. LOVENOX [Suspect]
     Active Substance: ENOXAPARIN SODIUM
     Indication: THROMBOSIS PROPHYLAXIS
     Route: 058
     Dates: start: 20180329
  9. CANCIDAS [Suspect]
     Active Substance: CASPOFUNGIN ACETATE
     Indication: SEPTIC SHOCK
     Route: 042
     Dates: start: 20180321, end: 20180402

REACTIONS (1)
  - Rash maculo-papular [Not Recovered/Not Resolved]

NARRATIVE: CASE EVENT DATE: 20180403
